FAERS Safety Report 5999930-9 (Version None)
Quarter: 2008Q4

REPORT INFORMATION
  Report Type: 
  Country: None (occurrence: None)
  Receive Date: 20081215
  Receipt Date: 20081205
  Transmission Date: 20090506
  Serious: Yes (Hospitalization, Other)
  Sender: FDA-Public Use
  Company Number: PHHY2008BR31044

PATIENT
  Sex: Male
  Weight: 76 kg

DRUGS (12)
  1. EXELON [Suspect]
     Indication: DEMENTIA ALZHEIMER'S TYPE
     Dosage: 1.5 MG
     Route: 048
     Dates: start: 20080601
  2. EXELON [Suspect]
     Dosage: 1.5 MG, BID
     Route: 048
  3. EXELON [Suspect]
     Dosage: 4.5 MG
     Route: 048
  4. RISPERIDONE [Suspect]
     Dosage: 1 MG
     Route: 048
     Dates: end: 20081101
  5. HUMAN-INSULIN 'NORDISK' [Concomitant]
     Indication: DIABETES MELLITUS
     Dosage: 30 IN THE MORNING AND 20 AT NIGHT
     Route: 058
  6. DIGOXIN [Concomitant]
     Indication: CARDIAC DISORDER
     Dosage: 1 TABLET DAILY
     Route: 048
  7. MEMANTINE HCL [Concomitant]
     Indication: DEMENTIA ALZHEIMER'S TYPE
     Dosage: 1 TABLET DAILY
     Route: 048
     Dates: start: 20080601
  8. ENALAPRIL W/HYDROCHLOROTHIAZIDE [Concomitant]
     Indication: HYPERTENSION
     Dosage: 1 TABLET DAILY
     Route: 048
     Dates: start: 20080601
  9. CITALOPRAM HYDROBROMIDE [Concomitant]
     Indication: SELF ESTEEM DECREASED
     Dosage: 1 TABLET DAILY
     Route: 048
     Dates: start: 20080601
  10. FUROSEMIDE [Concomitant]
     Indication: POLYURIA
     Dosage: 1 TABLET DAILYUNK
     Route: 048
     Dates: start: 20080601
  11. VITAMINS [Concomitant]
     Dosage: 1 DF DAILY
     Route: 048
     Dates: start: 20080601
  12. RIVOTRIL [Concomitant]

REACTIONS (9)
  - ABNORMAL BEHAVIOUR [None]
  - AGITATION [None]
  - CONFUSIONAL STATE [None]
  - DIABETES MELLITUS INADEQUATE CONTROL [None]
  - DYSARTHRIA [None]
  - FEEDING DISORDER [None]
  - HALLUCINATION [None]
  - HYPOGLYCAEMIA [None]
  - SLEEP DISORDER [None]
